FAERS Safety Report 20227004 (Version 1)
Quarter: 2021Q4

REPORT INFORMATION
  Report Type: Spontaneous
  Country: ID (occurrence: ID)
  Receive Date: 20211224
  Receipt Date: 20211224
  Transmission Date: 20220303
  Serious: No
  Sender: FDA-Public Use
  Company Number: ID-LUPIN PHARMACEUTICALS INC.-2021-25218

PATIENT
  Age: 9 Month
  Sex: Male
  Weight: 8.5 kg

DRUGS (5)
  1. METHYLPREDNISOLONE [Suspect]
     Active Substance: METHYLPREDNISOLONE
     Indication: Immune thrombocytopenia
     Dosage: 30 MILLIGRAM/KILOGRAM, QD, 250 MG FOR 3 DAYS
     Route: 042
  2. METHYLPREDNISOLONE [Suspect]
     Active Substance: METHYLPREDNISOLONE
     Indication: COVID-19
     Dosage: 20 MILLIGRAM/KILOGRAM, QD, (175 MG)
     Route: 048
  3. AZITHROMYCIN [Suspect]
     Active Substance: AZITHROMYCIN
     Indication: COVID-19
     Dosage: 100 MILLIGRAM, QD
     Route: 065
  4. VITAMIN C [Suspect]
     Active Substance: ASCORBIC ACID
     Indication: COVID-19
     Dosage: 50 MILLIGRAM, QD
     Route: 048
  5. ZINC [Suspect]
     Active Substance: ZINC
     Indication: COVID-19
     Dosage: 20 MILLIGRAM, QD
     Route: 065

REACTIONS (1)
  - Off label use [Unknown]
